FAERS Safety Report 25833182 (Version 1)
Quarter: 2025Q3

REPORT INFORMATION
  Report Type: Spontaneous
  Country: US (occurrence: US)
  Receive Date: 20250922
  Receipt Date: 20250922
  Transmission Date: 20251020
  Serious: Yes (Hospitalization, Other)
  Sender: ELI LILLY AND COMPANY
  Company Number: US-ELI_LILLY_AND_COMPANY-US202509013924

PATIENT
  Age: 46 Year
  Sex: Female

DRUGS (1)
  1. HUMULIN R U-500 [Suspect]
     Active Substance: INSULIN HUMAN
     Indication: Product used for unknown indication
     Route: 065

REACTIONS (4)
  - Hereditary non-polyposis colorectal cancer syndrome [Unknown]
  - Ovarian disorder [Recovered/Resolved]
  - Sepsis [Recovered/Resolved]
  - Abdominal abscess [Recovered/Resolved]
